FAERS Safety Report 7701856-7 (Version None)
Quarter: 2011Q3

REPORT INFORMATION
  Report Type: 
  Country: None (occurrence: None)
  Receive Date: 20110822
  Receipt Date: 20110817
  Transmission Date: 20111222
  Serious: Yes (Hospitalization, Other)
  Sender: FDA-Public Use
  Company Number: US-ELI_LILLY_AND_COMPANY-US201104002756

PATIENT
  Sex: Female
  Weight: 101.13 kg

DRUGS (12)
  1. BYETTA [Suspect]
     Dosage: 10 UG, BID
  2. TRIGLIDE [Concomitant]
  3. PRAVACHOL [Concomitant]
  4. METAMUCIL-2 [Concomitant]
  5. LISINOPRIL [Concomitant]
  6. METFORMIN HCL [Concomitant]
  7. HUMULIN                                 /PRI/ [Concomitant]
  8. CALCIUM CITRATE [Concomitant]
  9. BYETTA [Suspect]
     Dosage: 5 UG, BID
     Dates: start: 20050701
  10. OXYCONTIN [Concomitant]
  11. PERCOCET [Concomitant]
  12. ACIPHEX [Concomitant]

REACTIONS (4)
  - DIARRHOEA [None]
  - PANCREATITIS ACUTE [None]
  - WEIGHT DECREASED [None]
  - OFF LABEL USE [None]
